FAERS Safety Report 19072305 (Version 1)
Quarter: 2021Q1

REPORT INFORMATION
  Report Type: Spontaneous
  Country: US (occurrence: US)
  Receive Date: 20210329
  Receipt Date: 20210329
  Transmission Date: 20210420
  Serious: Yes (Other)
  Sender: FDA-Public Use
  Company Number: None

PATIENT
  Age: 59 Year
  Sex: Male
  Weight: 67.5 kg

DRUGS (2)
  1. ATROVASTATIN [Concomitant]
     Active Substance: ATORVASTATIN CALCIUM
     Dates: start: 20210216
  2. OTEZLA [Suspect]
     Active Substance: APREMILAST
     Route: 048
     Dates: start: 20210216

REACTIONS (3)
  - Mood swings [None]
  - Agitation [None]
  - Irritability [None]

NARRATIVE: CASE EVENT DATE: 20210216
